FAERS Safety Report 15854765 (Version 1)
Quarter: 2019Q1

REPORT INFORMATION
  Report Type: Spontaneous
  Country: FR (occurrence: FR)
  Receive Date: 20190122
  Receipt Date: 20190122
  Transmission Date: 20190417
  Serious: Yes (Hospitalization)
  Sender: FDA-Public Use
  Company Number: FR-BAYER-2019-016418

PATIENT
  Age: 33 Year
  Sex: Male

DRUGS (7)
  1. KETOPROFENE [KETOPROFEN] [Suspect]
     Active Substance: KETOPROFEN
     Indication: TOXICITY TO VARIOUS AGENTS
     Dosage: 16 DF, UNK
     Route: 048
  2. LORATADINE. [Suspect]
     Active Substance: LORATADINE
     Indication: TOXICITY TO VARIOUS AGENTS
     Dosage: 3 DF, UNK
     Route: 048
  3. TRAMADOL. [Suspect]
     Active Substance: TRAMADOL
     Indication: TOXICITY TO VARIOUS AGENTS
     Dosage: 60 DF, UNK
     Route: 048
  4. DIAZEPAM. [Suspect]
     Active Substance: DIAZEPAM
     Indication: TOXICITY TO VARIOUS AGENTS
     Dosage: 10 DF, UNK
     Route: 048
  5. BROMAZEPAM [Suspect]
     Active Substance: BROMAZEPAM
     Indication: TOXICITY TO VARIOUS AGENTS
     Dosage: 30 DF, UNK
     Route: 048
  6. CODOLIPRANE [Suspect]
     Active Substance: ACETAMINOPHEN\CODEINE PHOSPHATE
     Indication: TOXICITY TO VARIOUS AGENTS
     Dosage: 8 DF, UNK
     Route: 048
  7. SPASFON [PHLOROGLUCINOL] [Suspect]
     Active Substance: PHLOROGLUCINOL
     Indication: TOXICITY TO VARIOUS AGENTS
     Dosage: 7 DF, UNK
     Route: 048

REACTIONS (5)
  - Miosis [Recovered/Resolved]
  - Somnolence [Recovered/Resolved]
  - Intentional overdose [Recovered/Resolved]
  - Nausea [Recovered/Resolved]
  - Agitation [Recovered/Resolved]

NARRATIVE: CASE EVENT DATE: 20181208
